FAERS Safety Report 4432930-9 (Version None)
Quarter: 2004Q3

REPORT INFORMATION
  Report Type: 
  Country: None (occurrence: None)
  Receive Date: 20040823
  Receipt Date: 20040806
  Transmission Date: 20050211
  Serious: Yes (Death)
  Sender: FDA-Public Use
  Company Number: 04P-087-0267202-00

PATIENT
  Age: 6 Year
  Sex: Male

DRUGS (5)
  1. OMNICEF [Suspect]
     Indication: UPPER RESPIRATORY TRACT INFLAMMATION
     Dosage: 50 MG, 4 IN 1 D, ORAL
     Route: 048
     Dates: start: 20020118, end: 20020124
  2. THEO-DUR [Suspect]
     Indication: ASTHMA
     Dosage: 80 MG, 2 IN 1 D, ORAL
     Route: 048
     Dates: start: 20010417, end: 20020124
  3. ALLEGYSAL DRY SYRUP [Suspect]
     Indication: ASTHMA
     Dosage: 5 MG, 2 IN 1 D, ORAL
     Route: 048
     Dates: start: 20010417, end: 20020124
  4. RINDERON SYRUP [Suspect]
     Indication: ASTHMA
     Dosage: 0.5 MG, 3 IN 1 D, ORAL
     Route: 048
     Dates: start: 20020119, end: 20020224
  5. BECOTIDE [Suspect]
     Indication: ASTHMA
     Dosage: 100 MCG, 2 IN 1 D, RESPIRATORY (INHALATION)
     Route: 055
     Dates: start: 20010121, end: 20020124

REACTIONS (6)
  - ANAPHYLACTIC SHOCK [None]
  - ASTHMA [None]
  - CARDIAC FAILURE ACUTE [None]
  - CARDIO-RESPIRATORY ARREST [None]
  - FATIGUE [None]
  - UPPER RESPIRATORY TRACT INFLAMMATION [None]
